FAERS Safety Report 24035830 (Version 1)
Quarter: 2024Q3

REPORT INFORMATION
  Report Type: Spontaneous
  Country: CN (occurrence: CN)
  Receive Date: 20240701
  Receipt Date: 20240701
  Transmission Date: 20241017
  Serious: Yes (Hospitalization)
  Sender: NOVARTIS
  Company Number: CN-002147023-NVSC2024CN135272

PATIENT
  Age: 57 Year
  Sex: Male

DRUGS (3)
  1. MYCOPHENOLATE SODIUM [Suspect]
     Active Substance: MYCOPHENOLATE SODIUM
     Indication: Transplant rejection
     Dosage: 0.360 G, BID (ENTERIC-COATED TABLETS)
     Route: 048
     Dates: start: 20240501, end: 20240626
  2. TACROLIMUS [Suspect]
     Active Substance: TACROLIMUS
     Indication: Transplant rejection
     Dosage: 1.000 MG, BID
     Route: 048
     Dates: start: 20240501, end: 20240617
  3. TACROLIMUS [Suspect]
     Active Substance: TACROLIMUS
     Dosage: UNK 0.5/0.5
     Route: 065
     Dates: start: 20240619

REACTIONS (2)
  - Blood creatinine increased [Recovering/Resolving]
  - Diarrhoea [Recovered/Resolved]

NARRATIVE: CASE EVENT DATE: 20240606
